FAERS Safety Report 9661365 (Version 1)
Quarter: 2013Q4

REPORT INFORMATION
  Report Type: Not Available
  Country: US (occurrence: US)
  Receive Date: 20131031
  Receipt Date: 20131031
  Transmission Date: 20140711
  Serious: No
  Sender: FDA-Public Use
  Company Number: US-PURDUE-USA-2012-0083117

PATIENT
  Sex: 0

DRUGS (1)
  1. OXYCONTIN (NDA 22-272) [Suspect]
     Indication: BACK PAIN
     Dosage: 40 MG, UNK

REACTIONS (9)
  - Pain [Unknown]
  - Nausea [Unknown]
  - Abdominal pain upper [Unknown]
  - Dizziness [Unknown]
  - Constipation [Unknown]
  - Oesophageal irritation [Unknown]
  - Product gel formation [Unknown]
  - Inflammation [Unknown]
  - Foreign body [Unknown]
